FAERS Safety Report 14922891 (Version 1)
Quarter: 2018Q2

REPORT INFORMATION
  Report Type: Spontaneous
  Country: US (occurrence: US)
  Receive Date: 20180503
  Receipt Date: 20180503
  Transmission Date: 20180711
  Serious: Yes (Hospitalization)
  Sender: FDA-Public Use
  Company Number: None

PATIENT
  Age: 59 Year
  Sex: Male
  Weight: 78.4 kg

DRUGS (3)
  1. LEUCOVORIN CALCIUM. [Suspect]
     Active Substance: LEUCOVORIN CALCIUM
     Dates: end: 20171016
  2. 5-FLUOROURACIL (5-FU) [Suspect]
     Active Substance: FLUOROURACIL
     Dates: end: 20171016
  3. ELOXATIN [Suspect]
     Active Substance: OXALIPLATIN
     Dates: end: 20171016

REACTIONS (6)
  - Hyperkalaemia [None]
  - Abdominal pain [None]
  - Septic shock [None]
  - Acute kidney injury [None]
  - Metabolic acidosis [None]
  - Acute hepatic failure [None]

NARRATIVE: CASE EVENT DATE: 20180204
